FAERS Safety Report 9376538 (Version 2)
Quarter: 2013Q3

REPORT INFORMATION
  Report Type: Spontaneous
  Country: US (occurrence: US)
  Receive Date: 20130701
  Receipt Date: 20130802
  Transmission Date: 20140515
  Serious: No
  Sender: FDA-Public Use
  Company Number: US-PFIZER INC-2013194281

PATIENT
  Age: 66 Year
  Sex: Female
  Weight: 63.5 kg

DRUGS (2)
  1. CHANTIX [Suspect]
     Indication: SMOKING CESSATION THERAPY
     Dosage: 0.5 MG, DAILY
     Dates: start: 20130616, end: 201306
  2. CHANTIX [Suspect]
     Dosage: UNK
     Dates: start: 201306, end: 20130625

REACTIONS (4)
  - Depression [Recovered/Resolved]
  - Mood altered [Recovered/Resolved]
  - Abnormal dreams [Recovered/Resolved]
  - Hyperhidrosis [Recovered/Resolved]
